FAERS Safety Report 9928667 (Version 2)
Quarter: 2014Q2

REPORT INFORMATION
  Report Type: Spontaneous
  Country: US (occurrence: US)
  Receive Date: 20140227
  Receipt Date: 20140410
  Transmission Date: 20141212
  Serious: Yes (Other)
  Sender: FDA-Public Use
  Company Number: US-SHIRE-US201400018

PATIENT
  Sex: Female
  Weight: 99.77 kg

DRUGS (2)
  1. CARBATROL [Suspect]
     Indication: CONVULSION
     Dosage: 300 MG, 3X/DAY:TID
     Route: 048
  2. NOVOLIN R [Concomitant]
     Indication: TYPE 1 DIABETES MELLITUS
     Dosage: 30 IU, 1X/DAY:QD
     Route: 058

REACTIONS (4)
  - Convulsion [Not Recovered/Not Resolved]
  - Akinesia [Not Recovered/Not Resolved]
  - Pain [Not Recovered/Not Resolved]
  - Drug prescribing error [Not Recovered/Not Resolved]
